FAERS Safety Report 15954856 (Version 1)
Quarter: 2019Q1

REPORT INFORMATION
  Report Type: Spontaneous
  Country: FR (occurrence: FR)
  Receive Date: 20190213
  Receipt Date: 20190213
  Transmission Date: 20190417
  Serious: Yes (Hospitalization, Other)
  Sender: FDA-Public Use
  Company Number: FR-AUROBINDO-AUR-APL-2019-007285

PATIENT

DRUGS (1)
  1. PARACETAMOL [Suspect]
     Active Substance: ACETAMINOPHEN
     Indication: HEADACHE
     Dosage: 2 GRAM, EVERY TWO HOURS
     Route: 048

REACTIONS (5)
  - Inappropriate schedule of product administration [Recovered/Resolved]
  - Medication error [Recovered/Resolved]
  - Renal failure [Recovering/Resolving]
  - Hepatic failure [Recovered/Resolved]
  - Drug level increased [Recovered/Resolved]

NARRATIVE: CASE EVENT DATE: 20190102
